FAERS Safety Report 5216627-3 (Version None)
Quarter: 2007Q1

REPORT INFORMATION
  Report Type: 
  Country: None (occurrence: None)
  Receive Date: 20061130
  Receipt Date: 20060807
  Transmission Date: 20070707
  Serious: Yes (Hospitalization)
  Sender: FDA-Public Use
  Company Number: US200608002120

PATIENT
  Sex: Female
  Weight: 90.7 kg

DRUGS (6)
  1. ZYPREXA [Suspect]
     Dosage: 20 MG, DAILY (1/D)
     Dates: start: 19990101
  2. ABILIFY [Concomitant]
  3. SEROQUEL [Concomitant]
  4. RISPERDAL [Concomitant]
  5. WELLBUTRIN [Concomitant]
  6. REMERON [Concomitant]

REACTIONS (7)
  - BLOOD TRIGLYCERIDES INCREASED [None]
  - DIABETES MELLITUS [None]
  - DIABETIC COMA [None]
  - HYPERGLYCAEMIA [None]
  - HYPERTENSION [None]
  - METABOLIC DISORDER [None]
  - OBESITY [None]
